FAERS Safety Report 5157177-2 (Version None)
Quarter: 2006Q4

REPORT INFORMATION
  Report Type: 
  Country: None (occurrence: None)
  Receive Date: 20061115
  Receipt Date: 20061101
  Transmission Date: 20070319
  Serious: Yes (Hospitalization)
  Sender: FDA-Public Use
  Company Number: 2006PV022258

PATIENT
  Age: 65 Year
  Sex: Female
  Weight: 98.4306 kg

DRUGS (5)
  1. BYETTA [Suspect]
     Indication: DIABETES MELLITUS NON-INSULIN-DEPENDENT
     Dosage: 5 MCG; BID; SC
     Route: 058
     Dates: start: 20060908, end: 20061003
  2. GLYBURIDE [Concomitant]
  3. METFORMIN HCL [Concomitant]
  4. AVANDIA [Concomitant]
  5. COLESTID [Concomitant]

REACTIONS (14)
  - ABDOMINAL DISCOMFORT [None]
  - ANAEMIA [None]
  - ASTHENIA [None]
  - BLOOD GLUCOSE DECREASED [None]
  - BLOOD GLUCOSE INCREASED [None]
  - CARDIAC DISORDER [None]
  - CORONARY ARTERY OCCLUSION [None]
  - DYSPEPSIA [None]
  - EARLY SATIETY [None]
  - FATIGUE [None]
  - MYOCARDIAL INFARCTION [None]
  - SELF-MEDICATION [None]
  - VISION BLURRED [None]
  - VOMITING [None]
